FAERS Safety Report 5947425-0 (Version None)
Quarter: 2008Q4

REPORT INFORMATION
  Report Type: 
  Country: None (occurrence: None)
  Receive Date: 20081110
  Receipt Date: 20081106
  Transmission Date: 20090506
  Serious: Yes (Other)
  Sender: FDA-Public Use
  Company Number: GB-PFIZER INC-2008094114

PATIENT
  Age: 27 Year
  Sex: Female

DRUGS (2)
  1. CHAMPIX [Suspect]
     Indication: SMOKING CESSATION THERAPY
     Route: 048
     Dates: start: 20080909, end: 20081018
  2. DEPO-PROVERA [Concomitant]
     Indication: CONTRACEPTION
     Route: 030
     Dates: start: 20051209

REACTIONS (5)
  - ABNORMAL DREAMS [None]
  - HYPERSOMNIA [None]
  - NAUSEA [None]
  - SELF-INJURIOUS IDEATION [None]
  - SENSITIVITY OF TEETH [None]
